FAERS Safety Report 16954070 (Version 1)
Quarter: 2019Q4

REPORT INFORMATION
  Report Type: Spontaneous
  Country: JP (occurrence: JP)
  Receive Date: 20191023
  Receipt Date: 20191023
  Transmission Date: 20200122
  Serious: Yes (Hospitalization)
  Sender: FDA-Public Use
  Company Number: JP-SHIRE-JP201934688

PATIENT

DRUGS (2)
  1. ADVATE [Suspect]
     Active Substance: ANTIHEMOPHILIC FACTOR, HUMAN RECOMBINANT
     Indication: HAEMOPHILIA
     Dosage: UNK
     Route: 065
  2. ADYNOVATE [Concomitant]
     Active Substance: ANTIHEMOPHILIC FACTOR, HUMAN RECOMBINANT
     Indication: HAEMOPHILIA
     Dosage: UNK
     Route: 065

REACTIONS (1)
  - Hospitalisation [Unknown]
